FAERS Safety Report 5343325-8 (Version None)
Quarter: 2007Q2

REPORT INFORMATION
  Report Type: 
  Country: None (occurrence: None)
  Receive Date: 20070502
  Receipt Date: 20060313
  Transmission Date: 20071010
  Serious: Yes (Other)
  Sender: FDA-Public Use
  Company Number: PHEH2006US03667

PATIENT
  Sex: Female

DRUGS (1)
  1. LOTREL [Suspect]
     Dosage: ORAL
     Route: 048
     Dates: start: 20020101, end: 20020101

REACTIONS (2)
  - DYSPNOEA [None]
  - SWOLLEN TONGUE [None]
